FAERS Safety Report 24641718 (Version 1)
Quarter: 2024Q4

REPORT INFORMATION
  Report Type: Spontaneous
  Country: JP (occurrence: JP)
  Receive Date: 20241120
  Receipt Date: 20241120
  Transmission Date: 20250115
  Serious: Yes (Hospitalization, Other)
  Sender: BOEHRINGER INGELHEIM
  Company Number: JP-NBI-2024-BI-063878

PATIENT
  Age: 8 Decade
  Sex: Male

DRUGS (2)
  1. JARDIANCE [Suspect]
     Active Substance: EMPAGLIFLOZIN
     Indication: Type 2 diabetes mellitus
     Route: 048
  2. INSULIN LISPRO [Concomitant]
     Active Substance: INSULIN LISPRO
     Indication: Type 2 diabetes mellitus
     Dosage: TEN UNITS JUST BEFORE BREAKFAST, TEN UNITS JUST BEFORE DINNER

REACTIONS (5)
  - Pneumonia [Unknown]
  - Euglycaemic diabetic ketoacidosis [Recovered/Resolved]
  - Physical deconditioning [Unknown]
  - Pyrexia [Unknown]
  - Decreased appetite [Unknown]
